FAERS Safety Report 17017458 (Version 1)
Quarter: 2019Q4

REPORT INFORMATION
  Report Type: Spontaneous
  Country: TR (occurrence: TR)
  Receive Date: 20191111
  Receipt Date: 20191111
  Transmission Date: 20200122
  Serious: Yes (Hospitalization, Other)
  Sender: FDA-Public Use
  Company Number: TR-B.I. PHARMACEUTICALS,INC./RIDGEFIELD-2019-MI-111960

PATIENT
  Age: 85 Year
  Sex: Female

DRUGS (3)
  1. PRADAXA [Suspect]
     Active Substance: DABIGATRAN ETEXILATE MESYLATE
     Indication: THROMBOSIS PROPHYLAXIS
     Route: 065
     Dates: start: 2014
  2. PRADAXA [Suspect]
     Active Substance: DABIGATRAN ETEXILATE MESYLATE
     Route: 065
  3. PRADAXA [Suspect]
     Active Substance: DABIGATRAN ETEXILATE MESYLATE
     Route: 065

REACTIONS (9)
  - Thrombosis [Unknown]
  - Pruritus [Unknown]
  - Vascular occlusion [Unknown]
  - Swelling [Unknown]
  - Urinary tract infection [Unknown]
  - Ischaemia [Unknown]
  - Contusion [Recovered/Resolved]
  - Skin discolouration [Recovered/Resolved]
  - Wound [Unknown]

NARRATIVE: CASE EVENT DATE: 2016
